FAERS Safety Report 10095736 (Version 2)
Quarter: 2014Q2

REPORT INFORMATION
  Report Type: Spontaneous
  Country: US (occurrence: US)
  Receive Date: 20140422
  Receipt Date: 20140422
  Transmission Date: 20141212
  Serious: No
  Sender: FDA-Public Use
  Company Number: US-GILEAD-2013-0072604

PATIENT
  Age: 55 Year
  Sex: Male

DRUGS (4)
  1. LETAIRIS [Suspect]
     Indication: DRUG ABUSE
     Dosage: 10 MG, QD
     Route: 048
     Dates: start: 20120116
  2. LETAIRIS [Suspect]
     Indication: PULMONARY HYPERTENSION
  3. TYVASO [Suspect]
  4. REVATIO [Concomitant]

REACTIONS (3)
  - Depression [Unknown]
  - Cough [Unknown]
  - Headache [Unknown]
